FAERS Safety Report 4340084-2 (Version None)
Quarter: 2004Q2

REPORT INFORMATION
  Report Type: 
  Country: None (occurrence: None)
  Receive Date: 20040412
  Receipt Date: 20040329
  Transmission Date: 20050107
  Serious: Yes (Hospitalization)
  Sender: FDA-Public Use
  Company Number: 2004AP01955

PATIENT
  Age: 53 Year
  Sex: Male
  Weight: 70 kg

DRUGS (2)
  1. NEXIUM [Suspect]
     Indication: GASTROOESOPHAGEAL REFLUX DISEASE
  2. SOMAC [Concomitant]

REACTIONS (3)
  - BIOPSY LIVER ABNORMAL [None]
  - EOSINOPHILIA [None]
  - HEPATITIS CHOLESTATIC [None]
